FAERS Safety Report 8380386-6 (Version None)
Quarter: 2012Q2

REPORT INFORMATION
  Report Type: 
  Country: None (occurrence: None)
  Receive Date: 20120523
  Receipt Date: 20120518
  Transmission Date: 20120825
  Serious: Yes (Death)
  Sender: FDA-Public Use
  Company Number: US-CELGENEUS-163-21880-12023004

PATIENT
  Sex: Female
  Weight: 47.5 kg

DRUGS (16)
  1. REVLIMID [Suspect]
     Dosage: 5 MILLIGRAM
     Route: 048
     Dates: end: 20120206
  2. MOM [Concomitant]
     Dosage: 800MG/5ML SUSPENSION
     Route: 048
  3. MURINE [Concomitant]
     Dosage: 0.5-0.6%  OS
     Route: 047
  4. REVLIMID [Suspect]
     Dosage: 2.5 MILLIGRAM
     Route: 048
     Dates: start: 20080305
  5. ACTONEL [Concomitant]
     Dosage: 1
     Route: 048
  6. OXYBUTYNIN CHLORIDE [Concomitant]
     Dosage: 1
     Route: 048
  7. TYLENOL ES [Concomitant]
     Route: 048
  8. CALCIUM 600 + VITAMIN D [Concomitant]
     Dosage: 1  600MG-200
     Route: 048
  9. LUMIGAN [Concomitant]
     Dosage: OU
     Route: 047
  10. VITAMIN B-12 [Concomitant]
     Indication: VITAMIN B12 DEFICIENCY
     Dosage: 2
     Route: 060
  11. ICAPS [Concomitant]
     Dosage: 1.66-0.83
     Route: 048
  12. MAGNESIUM HYDROXIDE TAB [Concomitant]
     Dosage: 200-200-20
     Route: 048
  13. GUAIFENESIN [Concomitant]
     Dosage: 200-10MG/5
     Route: 048
  14. ARANESP [Concomitant]
     Dosage: 200 MILLIGRAM
     Route: 065
  15. MULTI-VITAMINS [Concomitant]
     Dosage: 1
     Route: 048
  16. KAOPECTATE [Concomitant]
     Dosage: 262/15ML
     Route: 048

REACTIONS (1)
  - BLADDER CANCER [None]
